FAERS Safety Report 10588006 (Version 6)
Quarter: 2015Q1

REPORT INFORMATION
  Report Type: Spontaneous
  Country: CA (occurrence: CA)
  Receive Date: 20141117
  Receipt Date: 20150217
  Transmission Date: 20150720
  Serious: Yes (Life-Threatening, Hospitalization, Other)
  Sender: FDA-Public Use
  Company Number: CA-009507513-1411CAN006899

PATIENT
  Age: 1 Month
  Sex: Female

DRUGS (1)
  1. HYDRASENSE ULTRA-GENTLE MIST [Suspect]
     Active Substance: SEA WATER
     Indication: NASAL CONGESTION
     Route: 065

REACTIONS (3)
  - Cyanosis [Recovering/Resolving]
  - Asphyxia [Recovering/Resolving]
  - Device defective [Unknown]

NARRATIVE: CASE EVENT DATE: 20141113
